FAERS Safety Report 19366575 (Version 1)
Quarter: 2021Q2

REPORT INFORMATION
  Report Type: Report from Study
  Country: US (occurrence: US)
  Receive Date: 20210603
  Receipt Date: 20210603
  Transmission Date: 20210717
  Serious: Yes (Hospitalization)
  Sender: FDA-Public Use
  Company Number: US-ROCHE-2837406

PATIENT
  Age: 75 Year
  Sex: Female
  Weight: 66.3 kg

DRUGS (3)
  1. ATEZOLIZUMAB. [Suspect]
     Active Substance: ATEZOLIZUMAB
     Indication: FALLOPIAN TUBE CANCER
     Dosage: ON 01/MAR/2019, RECEIVED LAST DOSE OF ATEZOLIZUMAB
     Route: 041
     Dates: start: 20181214
  2. PEGYLATED LIPOSOMAL DOXORUBICIN HYDROCHLORIDE [Suspect]
     Active Substance: DOXORUBICIN HYDROCHLORIDE
     Indication: FALLOPIAN TUBE CANCER
     Dosage: ON 04/JUN/2019, RECEIVED LAST DOSE AT 63 MG
     Route: 042
     Dates: start: 20181214
  3. BEVACIZUMAB. [Suspect]
     Active Substance: BEVACIZUMAB
     Indication: FALLOPIAN TUBE CANCER
     Dosage: ON 04/JUN/2019, RECEIVED LAST DOSE OF BEVACIZUMAB 667 MG
     Route: 042
     Dates: start: 20181214

REACTIONS (4)
  - Oesophagitis [Recovered/Resolved]
  - Asthenia [Recovered/Resolved]
  - Stomatitis [Recovered/Resolved]
  - Fatigue [Recovered/Resolved]

NARRATIVE: CASE EVENT DATE: 20190618
